FAERS Safety Report 15306550 (Version 1)
Quarter: 2018Q4

REPORT INFORMATION
  Report Type: Spontaneous
  Country: SE (occurrence: SE)
  Receive Date: 20180822
  Receipt Date: 20180822
  Transmission Date: 20190204
  Serious: Yes (Hospitalization)
  Sender: FDA-Public Use
  Company Number: SE-TEVA-2018-SE-944680

PATIENT
  Age: 76 Year
  Sex: Female

DRUGS (1)
  1. ATORVASTATIN TEVA 40 MG FILMDRAGERAD TABLETT [Suspect]
     Active Substance: ATORVASTATIN
     Indication: LIPIDS INCREASED
     Dosage: 40 MILLIGRAM DAILY;
     Dates: start: 20180424

REACTIONS (4)
  - Red blood cell sedimentation rate increased [Recovered/Resolved]
  - Fatigue [Recovered/Resolved]
  - Pyrexia [Recovered/Resolved]
  - Liver function test increased [Recovered/Resolved]

NARRATIVE: CASE EVENT DATE: 201804
